FAERS Safety Report 4367887-2 (Version None)
Quarter: 2004Q2

REPORT INFORMATION
  Report Type: 
  Country: None (occurrence: None)
  Receive Date: 20040601
  Receipt Date: 20040601
  Transmission Date: 20050107
  Serious: Yes (Life-Threatening)
  Sender: FDA-Public Use
  Company Number: None

PATIENT
  Age: 22 Year
  Sex: Female
  Weight: 58.9676 kg

DRUGS (7)
  1. LEXAPRO [Suspect]
     Indication: ANXIETY
     Dosage: 10 MG DAILY ORAL
     Route: 048
     Dates: start: 20030715, end: 20040301
  2. LEXAPRO [Suspect]
     Indication: DEPRESSION
     Dosage: 10 MG DAILY ORAL
     Route: 048
     Dates: start: 20030715, end: 20040301
  3. LEXAPRO [Suspect]
     Indication: MOOD SWINGS
     Dosage: 10 MG DAILY ORAL
     Route: 048
     Dates: start: 20030715, end: 20040301
  4. LEXAPRO [Suspect]
     Indication: TREMOR
     Dosage: 10 MG DAILY ORAL
     Route: 048
     Dates: start: 20030715, end: 20040301
  5. TRAZODONE HCL [Suspect]
     Indication: ANXIETY
     Dosage: NIGHTLY ORAL
     Route: 048
     Dates: start: 20030731, end: 20040301
  6. TRAZODONE HCL [Suspect]
     Indication: DEPRESSION
     Dosage: NIGHTLY ORAL
     Route: 048
     Dates: start: 20030731, end: 20040301
  7. TRAZODONE HCL [Suspect]
     Indication: INSOMNIA
     Dosage: NIGHTLY ORAL
     Route: 048
     Dates: start: 20030731, end: 20040301

REACTIONS (4)
  - DEPRESSION [None]
  - PSYCHIATRIC SYMPTOM [None]
  - SELF-INJURIOUS IDEATION [None]
  - SUICIDE ATTEMPT [None]
